FAERS Safety Report 23188269 (Version 2)
Quarter: 2023Q4

REPORT INFORMATION
  Report Type: Spontaneous
  Country: US (occurrence: US)
  Receive Date: 20231115
  Receipt Date: 20231204
  Transmission Date: 20240110
  Serious: No
  Sender: FDA-Public Use
  Company Number: US-PFIZER INC-PV202300185611

PATIENT
  Age: 65 Year
  Sex: Male

DRUGS (1)
  1. NURTEC ODT [Suspect]
     Active Substance: RIMEGEPANT SULFATE
     Dosage: 75 MG, ALTERNATE DAY (PLACE 1 TABLET ON OR UNDER THE TONGUE EVERY OTHER DAY)
     Route: 048

REACTIONS (1)
  - Hyperhidrosis [Not Recovered/Not Resolved]
